FAERS Safety Report 8597446-7 (Version None)
Quarter: 2012Q3

REPORT INFORMATION
  Report Type: 
  Country: None (occurrence: None)
  Receive Date: 20120816
  Receipt Date: 20120806
  Transmission Date: 20120928
  Serious: Yes (Hospitalization)
  Sender: FDA-Public Use
  Company Number: US-JNJFOC-20120708334

PATIENT
  Age: 32 Year
  Sex: Male
  Weight: 131.54 kg

DRUGS (5)
  1. PALIPERIDONE PALMITATE [Suspect]
     Indication: SCHIZOPHRENIA
     Route: 030
  2. PALIPERIDONE PALMITATE [Suspect]
     Route: 030
  3. ANTI-DEPRESSANT MEDICATION [Concomitant]
     Indication: DEPRESSION
     Route: 065
  4. PRISTIQ [Concomitant]
     Dosage: QHS (DURING NIGHT)
     Route: 048
  5. PRISTIQ [Concomitant]
     Dosage: QHS (DURING NIGHT)
     Route: 048
     Dates: start: 20120410

REACTIONS (1)
  - DEPRESSION [None]
